FAERS Safety Report 23802076 (Version 5)
Quarter: 2024Q3

REPORT INFORMATION
  Report Type: Spontaneous
  Country: US (occurrence: US)
  Receive Date: 20240501
  Receipt Date: 20240821
  Transmission Date: 20241016
  Serious: Yes (Other)
  Sender: SANOFI AVENTIS
  Company Number: US-SA-SAC20240429001660

PATIENT
  Age: 76 Year
  Sex: Female
  Weight: 48.526 kg

DRUGS (1)
  1. DUPIXENT [Suspect]
     Active Substance: DUPILUMAB
     Indication: Dermatitis atopic
     Dosage: 300 MG, QOW
     Route: 058

REACTIONS (8)
  - Hip fracture [Unknown]
  - Fall [Unknown]
  - Pain [Unknown]
  - Thyroid disorder [Unknown]
  - Weight decreased [Unknown]
  - Memory impairment [Unknown]
  - Pruritus [Unknown]
  - Rash [Unknown]

NARRATIVE: CASE EVENT DATE: 20240201
